FAERS Safety Report 8546908-7 (Version None)
Quarter: 2012Q3

REPORT INFORMATION
  Report Type: 
  Country: None (occurrence: None)
  Receive Date: 20120727
  Receipt Date: 20120118
  Transmission Date: 20120928
  Serious: No
  Sender: FDA-Public Use
  Company Number: US-ASTRAZENECA-2012SE03685

PATIENT
  Age: 29 Year
  Sex: Female
  Weight: 62.6 kg

DRUGS (3)
  1. CYMBALTA [Concomitant]
     Indication: DEPRESSION
  2. SEROQUEL [Suspect]
     Indication: BIPOLAR DISORDER
     Route: 048
  3. LAMICTAL [Concomitant]

REACTIONS (13)
  - RASH [None]
  - MUSCLE SPASMS [None]
  - DRUG DOSE OMISSION [None]
  - ABDOMINAL PAIN UPPER [None]
  - METABOLIC DISORDER [None]
  - HEADACHE [None]
  - CHILLS [None]
  - HANGOVER [None]
  - WEIGHT INCREASED [None]
  - NAUSEA [None]
  - WEIGHT DECREASED [None]
  - THERAPY REGIMEN CHANGED [None]
  - SOMNOLENCE [None]
